FAERS Safety Report 9907819 (Version 1)
Quarter: 2014Q1

REPORT INFORMATION
  Report Type: Spontaneous
  Country: US (occurrence: US)
  Receive Date: 20140219
  Receipt Date: 20140219
  Transmission Date: 20141002
  Serious: No
  Sender: FDA-Public Use
  Company Number: US-BIOGENIDEC-2014BI013810

PATIENT
  Age: 66 Year
  Sex: Female

DRUGS (18)
  1. TECFIDERA [Suspect]
     Indication: MULTIPLE SCLEROSIS
     Route: 048
     Dates: start: 201311
  2. EVENING PRIMROSE [Concomitant]
  3. PRILOSEC [Concomitant]
  4. FOSAMAX [Concomitant]
  5. ZOCOR [Concomitant]
  6. COREG [Concomitant]
  7. PEPCID [Concomitant]
  8. NEURONTIN [Concomitant]
  9. TEGRETOL [Concomitant]
  10. TUMS ULTRA [Concomitant]
  11. TUMS CALCIUM [Concomitant]
  12. LAMICTAL [Concomitant]
  13. MOMETASONE FUROATE [Concomitant]
  14. CLONIDINE [Concomitant]
  15. MOTRIN [Concomitant]
  16. TYLENOL [Concomitant]
  17. ADVIL [Concomitant]
  18. ASPIRIN [Concomitant]

REACTIONS (3)
  - Gastrooesophageal reflux disease [Not Recovered/Not Resolved]
  - Rash [Not Recovered/Not Resolved]
  - Flushing [Not Recovered/Not Resolved]
